FAERS Safety Report 4817763-3 (Version None)
Quarter: 2005Q4

REPORT INFORMATION
  Report Type: 
  Country: None (occurrence: None)
  Receive Date: 20051102
  Receipt Date: 20051004
  Transmission Date: 20060501
  Serious: Yes (Other)
  Sender: FDA-Public Use
  Company Number: MY-BOEHRINGER INGELHEIM PHARMACEUTICALS, INC.-2005-BP-17653SG

PATIENT
  Sex: Male

DRUGS (8)
  1. TIOTROPIUM INH. POWDER [Suspect]
     Route: 055
  2. PLAVIX [Concomitant]
  3. NEULIN SR [Concomitant]
  4. DUOVENT [Concomitant]
  5. COVERSYL [Concomitant]
  6. NOVARSC [Concomitant]
  7. CONCOR [Concomitant]
  8. BIOQUINONE [Concomitant]

REACTIONS (1)
  - LUNG NEOPLASM MALIGNANT [None]
